FAERS Safety Report 11734966 (Version 2)
Quarter: 2016Q1

REPORT INFORMATION
  Report Type: Spontaneous
  Country: IT (occurrence: IT)
  Receive Date: 20151113
  Receipt Date: 20160202
  Transmission Date: 20160525
  Serious: Yes (Hospitalization)
  Sender: FDA-Public Use
  Company Number: IT-ASTRAZENECA-2015SF09501

PATIENT
  Age: 27861 Day
  Sex: Female
  Weight: 92 kg

DRUGS (16)
  1. LEVOXACIN [Concomitant]
     Active Substance: LEVOFLOXACIN
     Dosage: 500 MG 1C AT 08.00 A.M. FOR 7 DAYS
  2. RAMIPRIL. [Concomitant]
     Active Substance: RAMIPRIL
     Dosage: 2.5 MG 1C AT 08.00 A.M. (TO INCREASE THE DOSE IF BLOOD PRESSURE VALUES CHANGED)
  3. DIFLUCAN [Concomitant]
     Active Substance: FLUCONAZOLE
     Dosage: 100 MG 1C AT 02.00 P.M. FOR 7 DAYS
  4. FORXIGA [Suspect]
     Active Substance: DAPAGLIFLOZIN
     Indication: TYPE 2 DIABETES MELLITUS
     Route: 048
     Dates: start: 20150722, end: 20151012
  5. METFORMIN HYDROCHLORIDE. [Suspect]
     Active Substance: METFORMIN HYDROCHLORIDE
     Indication: TYPE 2 DIABETES MELLITUS
     Route: 048
     Dates: start: 20120823
  6. BISOPROLOL HEMIFUMARATE [Concomitant]
     Active Substance: BISOPROLOL FUMARATE
     Indication: PRODUCT USED FOR UNKNOWN INDICATION
     Route: 048
     Dates: start: 2012
  7. DIFLUCAN [Concomitant]
     Active Substance: FLUCONAZOLE
  8. LEVOXACIN [Concomitant]
     Active Substance: LEVOFLOXACIN
     Dates: start: 20151015
  9. LANTUS [Concomitant]
     Active Substance: INSULIN GLARGINE
     Indication: TYPE 2 DIABETES MELLITUS
     Dates: start: 2012
  10. EUTIROX [Concomitant]
     Active Substance: LEVOTHYROXINE SODIUM
     Indication: PRODUCT USED FOR UNKNOWN INDICATION
     Route: 048
     Dates: start: 2012
  11. LASIX [Concomitant]
     Active Substance: FUROSEMIDE
     Dosage: 25 MG 1C 1C AT 08.00 A.M
  12. METFORMIN HYDROCHLORIDE. [Suspect]
     Active Substance: METFORMIN HYDROCHLORIDE
     Indication: TYPE 2 DIABETES MELLITUS
     Dosage: METFORMIN TEVA
     Route: 065
  13. METFORMIN HYDROCHLORIDE. [Suspect]
     Active Substance: METFORMIN HYDROCHLORIDE
     Indication: TYPE 2 DIABETES MELLITUS
     Dosage: MYLAN GENERICS (METFORMIN), 1000 MG, THREE TIMES DAILY
     Route: 048
     Dates: start: 20120823, end: 20151012
  14. CARDIOASPIRIN [Concomitant]
     Active Substance: ASPIRIN
     Indication: PRODUCT USED FOR UNKNOWN INDICATION
     Dates: start: 2010
  15. HUMALOG [Concomitant]
     Active Substance: INSULIN LISPRO
     Dosage: 2.5 MG 1C AT 08.00 A.M. (TO INCREASE THE DOSE IF BLOOD PRESSURE VALUES CHANGED)
  16. LANSOX [Concomitant]
     Active Substance: LANSOPRAZOLE
     Dosage: 30 MG 1 CAT 08.00 A.M

REACTIONS (7)
  - Bundle branch block right [Unknown]
  - Blood osmolarity abnormal [Unknown]
  - Diabetic metabolic decompensation [Unknown]
  - Aortic arteriosclerosis [Unknown]
  - Blood creatinine abnormal [Unknown]
  - Blood glucose increased [Unknown]
  - Metabolic acidosis [Unknown]

NARRATIVE: CASE EVENT DATE: 20151012
